FAERS Safety Report 9445028 (Version 4)
Quarter: 2013Q4

REPORT INFORMATION
  Report Type: Report from Study
  Country: CA (occurrence: CA)
  Receive Date: 20130807
  Receipt Date: 20131127
  Transmission Date: 20140711
  Serious: Yes (Hospitalization, Other)
  Sender: FDA-Public Use
  Company Number: CA-JNJFOC-20130718369

PATIENT
  Age: 63 Year
  Sex: Male
  Weight: 91.2 kg

DRUGS (1)
  1. STELARA [Suspect]
     Indication: PSORIASIS
     Route: 065
     Dates: start: 20111229

REACTIONS (4)
  - Osteomyelitis [Recovered/Resolved]
  - Fall [Recovering/Resolving]
  - Tibia fracture [Recovering/Resolving]
  - Foot fracture [Recovering/Resolving]
